FAERS Safety Report 5657803-5 (Version None)
Quarter: 2008Q1

REPORT INFORMATION
  Report Type: 
  Country: None (occurrence: None)
  Receive Date: 20080310
  Receipt Date: 20080208
  Transmission Date: 20080703
  Serious: No
  Sender: FDA-Public Use
  Company Number: US-ASTRAZENECA-2007UW13840

PATIENT
  Sex: Male

DRUGS (2)
  1. LISINOPRIL [Suspect]
  2. NORVASC [Suspect]

REACTIONS (2)
  - DIZZINESS [None]
  - HYPERTENSION [None]
